FAERS Safety Report 7942417 (Version 3)
Quarter: 2013Q1

REPORT INFORMATION
  Report Type: Spontaneous
  Country: BR (occurrence: BR)
  Receive Date: 20110512
  Receipt Date: 20130207
  Transmission Date: 20140127
  Serious: Yes (Hospitalization, Other)
  Sender: FDA-Public Use
  Company Number: PHHY2011BR13817

PATIENT
  Sex: Female

DRUGS (3)
  1. FORASEQ [Suspect]
     Indication: DYSPNOEA
     Dosage: 2 DF
  2. COMBIVENT [Suspect]
     Indication: CHRONIC OBSTRUCTIVE PULMONARY DISEASE
     Dosage: UNK
  3. OXYGEN [Concomitant]
     Indication: CHRONIC OBSTRUCTIVE PULMONARY DISEASE
     Dosage: UNK

REACTIONS (12)
  - Monoplegia [Unknown]
  - Infarction [Recovering/Resolving]
  - Nosocomial infection [Recovering/Resolving]
  - Urinary tract infection [Recovering/Resolving]
  - Malaise [Recovering/Resolving]
  - Cardiac disorder [Unknown]
  - Lung disorder [Unknown]
  - Memory impairment [Recovering/Resolving]
  - Pulmonary embolism [Recovering/Resolving]
  - Diabetes mellitus [Recovering/Resolving]
  - Cardiac fibrillation [Unknown]
  - Dyspnoea [Unknown]
